FAERS Safety Report 7293713-8 (Version None)
Quarter: 2011Q1

REPORT INFORMATION
  Report Type: 
  Country: None (occurrence: None)
  Receive Date: 20110215
  Receipt Date: 20110209
  Transmission Date: 20110831
  Serious: Yes (Other)
  Sender: FDA-Public Use
  Company Number: B0699963A

PATIENT
  Age: 41 Year
  Sex: Female

DRUGS (2)
  1. LORATADINE [Concomitant]
     Indication: ACUTE TONSILLITIS
     Dosage: 10MG PER DAY
     Route: 048
     Dates: start: 20110121
  2. AUGMENTIN [Suspect]
     Indication: ACUTE TONSILLITIS
     Dosage: 2G PER DAY
     Route: 048
     Dates: start: 20110121

REACTIONS (4)
  - OCULAR ICTERUS [None]
  - CHROMATURIA [None]
  - FAECES PALE [None]
  - MUSCULOSKELETAL CHEST PAIN [None]
